FAERS Safety Report 8925748 (Version 4)
Quarter: 2013Q1

REPORT INFORMATION
  Report Type: Report from Study
  Country: BR (occurrence: BR)
  Receive Date: 20121126
  Receipt Date: 20130318
  Transmission Date: 20140127
  Serious: Yes (Other)
  Sender: FDA-Public Use
  Company Number: BR-ROCHE-1159714

PATIENT
  Sex: Female
  Weight: 92 kg

DRUGS (3)
  1. ACTEMRA [Suspect]
     Indication: RHEUMATOID ARTHRITIS
     Dosage: DATE OF LAST INFUSION RECIEVED : JAN/2013
     Route: 065
     Dates: start: 20111201
  2. PREDNISONE [Concomitant]
  3. METHOTREXATE [Concomitant]
     Route: 065

REACTIONS (2)
  - Arthralgia [Not Recovered/Not Resolved]
  - Pain [Recovering/Resolving]
